FAERS Safety Report 8782604 (Version 1)
Quarter: 2012Q4

REPORT INFORMATION
  Report Type: Report from Study
  Country: US (occurrence: US)
  Receive Date: 20120913
  Receipt Date: 20120913
  Transmission Date: 20130627
  Serious: No
  Sender: FDA-Public Use
  Company Number: US-VERTEX PHARMACEUTICAL INC.-AE-2012-010571

PATIENT
  Age: 55 Year
  Sex: Female

DRUGS (7)
  1. INCIVEK [Suspect]
     Indication: HEPATITIS C
     Route: 048
  2. PEGASYS [Concomitant]
     Indication: HEPATITIS C
  3. RIBAVIRIN [Concomitant]
     Indication: HEPATITIS C
  4. PREMPRO [Concomitant]
  5. ABILIFY [Concomitant]
  6. ALEVE [Concomitant]
  7. PRISTIQ [Concomitant]

REACTIONS (1)
  - Malaise [Recovered/Resolved]
